FAERS Safety Report 17216602 (Version 1)
Quarter: 2019Q4

REPORT INFORMATION
  Report Type: Spontaneous
  Country: BR (occurrence: BR)
  Receive Date: 20191230
  Receipt Date: 20191230
  Transmission Date: 20200122
  Serious: Yes (Other)
  Sender: FDA-Public Use
  Company Number: BR-LUNDBECK-DKLU3009669

PATIENT
  Sex: Female

DRUGS (2)
  1. URBANIL [Suspect]
     Active Substance: CLOBAZAM
     Indication: EPILEPSY
     Route: 048
  2. URBANIL [Suspect]
     Active Substance: CLOBAZAM
     Indication: DEPRESSION

REACTIONS (3)
  - Product availability issue [Unknown]
  - Drug dependence [Unknown]
  - Somnolence [Unknown]
